APPROVED DRUG PRODUCT: INVIRASE
Active Ingredient: SAQUINAVIR MESYLATE
Strength: EQ 500MG BASE
Dosage Form/Route: TABLET;ORAL
Application: N021785 | Product #001
Applicant: HOFFMANN-LA ROCHE INC
Approved: Dec 17, 2004 | RLD: Yes | RS: No | Type: DISCN